FAERS Safety Report 7582880-4 (Version None)
Quarter: 2011Q2

REPORT INFORMATION
  Report Type: 
  Country: None (occurrence: None)
  Receive Date: 20110630
  Receipt Date: 20110628
  Transmission Date: 20111010
  Serious: Yes (Other)
  Sender: FDA-Public Use
  Company Number: JP-PFIZER INC-2011144598

PATIENT
  Age: 73 Year
  Sex: Male

DRUGS (2)
  1. LYRICA [Suspect]
     Dosage: 25MG IN THE MORNING AND 75MG DAILY IN THE EVENING
     Route: 048
     Dates: start: 20110617, end: 20110624
  2. LYRICA [Suspect]
     Dosage: 150MG DAILY
     Route: 048
     Dates: start: 20110610, end: 20110616

REACTIONS (4)
  - SOMNOLENCE [None]
  - OEDEMA [None]
  - DIZZINESS [None]
  - BLADDER CATHETERISATION [None]
